FAERS Safety Report 11992245 (Version 1)
Quarter: 2016Q1

REPORT INFORMATION
  Report Type: Spontaneous
  Country: US (occurrence: US)
  Receive Date: 20160203
  Receipt Date: 20160203
  Transmission Date: 20160526
  Serious: No
  Sender: FDA-Public Use
  Company Number: US-JNJFOC-20151223734

PATIENT
  Sex: Female
  Weight: 16.33 kg

DRUGS (2)
  1. CHILDRENS TYLENOL [Suspect]
     Active Substance: ACETAMINOPHEN
     Indication: MALAISE
     Dosage: 1.5 TEASPOONFUL AT AN UNKNOWN FREQUENCY
     Route: 048
  2. CHILDRENS TYLENOL [Suspect]
     Active Substance: ACETAMINOPHEN
     Indication: PYREXIA
     Dosage: 1.5 TEASPOONFUL AT AN UNKNOWN FREQUENCY
     Route: 048

REACTIONS (1)
  - Extra dose administered [Unknown]
